FAERS Safety Report 8886021 (Version 2)
Quarter: 2014Q2

REPORT INFORMATION
  Report Type: Spontaneous
  Country: US (occurrence: US)
  Receive Date: 20121105
  Receipt Date: 20131024
  Transmission Date: 20141212
  Serious: Yes (Other)
  Sender: FDA-Public Use
  Company Number: US-PFIZER INC-2012272018

PATIENT
  Age: 67 Year
  Sex: Female
  Weight: 100 kg

DRUGS (12)
  1. PREMARIN [Suspect]
     Dosage: UNK
  2. PROVERA [Suspect]
     Dosage: UNK
  3. PREMPHASE [Suspect]
     Dosage: UNK
  4. BYETTA [Concomitant]
     Indication: DIABETES MELLITUS
     Dosage: 10 MG, 2X/DAY
  5. FLEXERIL [Concomitant]
     Dosage: 10 MG, 3X/DAY
  6. ATENOLOL [Concomitant]
     Dosage: 25 MG, 1X/DAY
  7. SYNTHROID [Concomitant]
     Indication: THYROID DISORDER
     Dosage: 0.025 MG, 1X/DAY
  8. LISINOPRIL [Concomitant]
     Indication: HYPERTENSION
     Dosage: 20 MG, 2X/DAY
  9. AMARYL [Concomitant]
     Dosage: 4 MG, 1X/DAY
  10. DYAZIDE [Concomitant]
     Dosage: UNK
  11. LORTAB [Concomitant]
     Dosage: UNK
  12. ACIPHEX [Concomitant]
     Dosage: 20 MG, UNK

REACTIONS (5)
  - Breast cancer [Unknown]
  - Depression [Unknown]
  - Crying [Unknown]
  - Anxiety [Unknown]
  - Insomnia [Unknown]
